FAERS Safety Report 4628356-5 (Version None)
Quarter: 2005Q2

REPORT INFORMATION
  Report Type: 
  Country: None (occurrence: None)
  Receive Date: 20050401
  Receipt Date: 20050323
  Transmission Date: 20051028
  Serious: Yes (Other)
  Sender: FDA-Public Use
  Company Number: 2005048553

PATIENT
  Age: 31 Year
  Sex: Male
  Weight: 83.9154 kg

DRUGS (3)
  1. ROGAINE [Suspect]
     Dosage: 1 ML BID, TOPICAL
     Route: 061
     Dates: start: 20050201, end: 20050323
  2. ASPIRIN [Concomitant]
  3. LANSOPRAZOLE [Concomitant]

REACTIONS (3)
  - CHEST PAIN [None]
  - DIZZINESS [None]
  - LOSS OF CONSCIOUSNESS [None]
